FAERS Safety Report 7019294-1 (Version None)
Quarter: 2010Q3

REPORT INFORMATION
  Report Type: 
  Country: None (occurrence: None)
  Receive Date: 20100928
  Receipt Date: 20100922
  Transmission Date: 20110219
  Serious: Yes (Other)
  Sender: FDA-Public Use
  Company Number: TH-ABBOTT-10P-155-0652526-00

PATIENT
  Age: 17 Year
  Sex: Female

DRUGS (5)
  1. KALETRA [Suspect]
     Indication: HIV INFECTION
     Route: 048
     Dates: start: 20100216
  2. LAMIVUDINE [Concomitant]
     Indication: HIV INFECTION
     Route: 048
     Dates: start: 20100216, end: 20100604
  3. COMBIVIR [Concomitant]
     Indication: HIV INFECTION
     Dosage: 600/300MG DAILY
     Dates: start: 20100604
  4. VIREAD [Concomitant]
     Indication: HIV INFECTION
     Route: 048
     Dates: start: 20100216
  5. ETRAVIRINE [Concomitant]
     Indication: HIV INFECTION
     Dates: start: 20100216, end: 20100604

REACTIONS (1)
  - ABORTION INDUCED [None]
